FAERS Safety Report 10526876 (Version 2)
Quarter: 2014Q4

REPORT INFORMATION
  Report Type: Spontaneous
  Country: RU (occurrence: RU)
  Receive Date: 20141020
  Receipt Date: 20141023
  Transmission Date: 20150528
  Serious: Yes (Life-Threatening, Other)
  Sender: FDA-Public Use
  Company Number: RU-ROCHE-1472699

PATIENT
  Age: 3 Year
  Sex: Female

DRUGS (5)
  1. ACTEMRA [Suspect]
     Active Substance: TOCILIZUMAB
     Dosage: DATE OF DOSE: 27/AUG/2014
     Route: 042
  2. SANDIMMUNE [Concomitant]
     Active Substance: CYCLOSPORINE
     Route: 048
  3. ACTEMRA [Suspect]
     Active Substance: TOCILIZUMAB
     Indication: JUVENILE IDIOPATHIC ARTHRITIS
     Dosage: DATE OF DOSE: 29/JUL/2014.
     Route: 042
  4. ACTEMRA [Suspect]
     Active Substance: TOCILIZUMAB
     Dosage: DATE OF DOSE: 12/AUG/2014
     Route: 042
  5. METIPRED [Concomitant]
     Active Substance: METHYLPREDNISOLONE
     Route: 048

REACTIONS (3)
  - Tachycardia [Recovered/Resolved]
  - Infusion related reaction [Recovered/Resolved]
  - Infusion related reaction [Recovered/Resolved]

NARRATIVE: CASE EVENT DATE: 20140525
